FAERS Safety Report 7917996-3 (Version None)
Quarter: 2011Q4

REPORT INFORMATION
  Report Type: 
  Country: None (occurrence: None)
  Receive Date: 20111114
  Receipt Date: 20111026
  Transmission Date: 20120403
  Serious: Yes (Other)
  Sender: FDA-Public Use
  Company Number: 1000025008

PATIENT
  Sex: Female

DRUGS (3)
  1. VIIBRYD [Suspect]
     Dosage: (10 MG),   (20 MG)
     Dates: start: 20110101, end: 20110101
  2. VIIBRYD [Suspect]
     Dosage: (10 MG),   (20 MG)
     Dates: start: 20110101, end: 20110101
  3. PRISTIQ [Suspect]
     Dosage: 100 MG (100 MG, 1 IN 1 D), 50 MG (50 MG, 1 IN 1 D)

REACTIONS (6)
  - LOSS OF CONSCIOUSNESS [None]
  - CONVULSION [None]
  - DRUG INEFFECTIVE [None]
  - SEROTONIN SYNDROME [None]
  - NEUROLEPTIC MALIGNANT SYNDROME [None]
  - FEELING ABNORMAL [None]
